FAERS Safety Report 15285775 (Version 1)
Quarter: 2018Q3

REPORT INFORMATION
  Report Type: Spontaneous
  Country: US (occurrence: US)
  Receive Date: 20180816
  Receipt Date: 20180816
  Transmission Date: 20181010
  Serious: No
  Sender: FDA-Public Use
  Company Number: US-PERRIGO-18US005969

PATIENT
  Sex: Male

DRUGS (1)
  1. NICOTINE POLACRILEX [Suspect]
     Active Substance: NICOTINE
     Indication: PRODUCT USED FOR UNKNOWN INDICATION
     Dosage: 2 MG , SINGLE
     Route: 002
     Dates: start: 20180602, end: 20180602

REACTIONS (2)
  - Pharyngeal oedema [Unknown]
  - Throat irritation [Unknown]

NARRATIVE: CASE EVENT DATE: 20180602
